FAERS Safety Report 13795225 (Version 1)
Quarter: 2017Q3

REPORT INFORMATION
  Report Type: Not Available
  Country: US (occurrence: US)
  Receive Date: 20170726
  Receipt Date: 20170726
  Transmission Date: 20171127
  Serious: No
  Sender: FDA-Public Use
  Company Number: US-NEUROCRINE BIOSCIENCES INC.-2017NBI00399

PATIENT
  Age: 59 Year
  Sex: Female

DRUGS (22)
  1. CALCIUM + D [Concomitant]
     Active Substance: CALCIUM\VITAMIN D
  2. DESMOPRESSIN [Concomitant]
     Active Substance: DESMOPRESSIN
  3. GINKOBA [Concomitant]
     Active Substance: GINKGO
  4. MULTIVITAMIN [Concomitant]
     Active Substance: VITAMINS
  5. ATIVAN [Concomitant]
     Active Substance: LORAZEPAM
  6. FLONASE [Concomitant]
     Active Substance: FLUTICASONE PROPIONATE
  7. LUNESTA [Concomitant]
     Active Substance: ESZOPICLONE
  8. PREMPRO [Concomitant]
     Active Substance: ESTROGENS, CONJUGATED\MEDROXYPROGESTERONE ACETATE
  9. INGREZZA [Suspect]
     Active Substance: VALBENAZINE
     Indication: PRODUCT USED FOR UNKNOWN INDICATION
     Route: 048
     Dates: start: 20170608
  10. CLOZAPINE. [Concomitant]
     Active Substance: CLOZAPINE
  11. ESTRACE [Concomitant]
     Active Substance: ESTRADIOL
  12. LATANOPROST. [Concomitant]
     Active Substance: LATANOPROST
  13. TIMOLOL. [Concomitant]
     Active Substance: TIMOLOL
  14. VITAMIN D [Concomitant]
     Active Substance: CHOLECALCIFEROL
  15. FERROUS SULFATE. [Concomitant]
     Active Substance: FERROUS SULFATE
  16. KLONOPIN [Concomitant]
     Active Substance: CLONAZEPAM
  17. VISTRAIL [Concomitant]
  18. VITAMIN E [Concomitant]
     Active Substance: .ALPHA.-TOCOPHEROL
  19. MYRBETRIQ [Concomitant]
     Active Substance: MIRABEGRON
  20. PREVACID [Concomitant]
     Active Substance: LANSOPRAZOLE
  21. PRISTIQ EXTENDED-RELEASE [Concomitant]
     Active Substance: DESVENLAFAXINE SUCCINATE
  22. WELLBUTRIN [Concomitant]
     Active Substance: BUPROPION HYDROCHLORIDE

REACTIONS (2)
  - Fatigue [Recovered/Resolved]
  - Confusional state [Recovered/Resolved]

NARRATIVE: CASE EVENT DATE: 20170608
